FAERS Safety Report 6305572-8 (Version None)
Quarter: 2009Q3

REPORT INFORMATION
  Report Type: 
  Country: None (occurrence: None)
  Receive Date: 20090807
  Receipt Date: 20090723
  Transmission Date: 20100115
  Serious: Yes (Hospitalization, Other)
  Sender: FDA-Public Use
  Company Number: ADE2009-0766

PATIENT
  Age: 1 Hour
  Sex: Female
  Weight: 2.64 kg

DRUGS (2)
  1. SERTRALINE [Suspect]
     Dosage: 100MG-QD-TRANSPLACENTAL
     Route: 064
  2. CO-DYDRAMOL [Concomitant]

REACTIONS (2)
  - DRUG WITHDRAWAL SYNDROME NEONATAL [None]
  - MATERNAL DRUGS AFFECTING FOETUS [None]
